FAERS Safety Report 13544477 (Version 1)
Quarter: 2017Q2

REPORT INFORMATION
  Report Type: Spontaneous
  Country: CH (occurrence: CH)
  Receive Date: 20170515
  Receipt Date: 20170515
  Transmission Date: 20170830
  Serious: Yes (Death)
  Sender: FDA-Public Use
  Company Number: CH-BAYER-2017-088556

PATIENT
  Age: 71 Year
  Sex: Male

DRUGS (10)
  1. CREON [Concomitant]
     Active Substance: PANCRELIPASE AMYLASE\PANCRELIPASE LIPASE\PANCRELIPASE PROTEASE
     Dosage: UNK UNK, TID
     Route: 048
  2. NOVALGIN [Concomitant]
     Active Substance: METAMIZOLE SODIUM
  3. SYMBICORT [Concomitant]
     Active Substance: BUDESONIDE\FORMOTEROL FUMARATE DIHYDRATE
     Dosage: UNK UNK, BID
  4. BECOZYME-C [VITAMINS NOS] [Concomitant]
     Route: 048
  5. BENERVA [Concomitant]
     Active Substance: THIAMINE
     Dosage: 300 MG, QD
     Route: 048
  6. ASPIRIN CARDIO 100 MG [Suspect]
     Active Substance: ASPIRIN
     Dosage: 100 MG, QD
     Route: 048
     Dates: start: 20170330
  7. XANAX [Concomitant]
     Active Substance: ALPRAZOLAM
     Dosage: .5 MG, QD
     Route: 048
  8. CYMBALTA [Interacting]
     Active Substance: DULOXETINE HYDROCHLORIDE
     Dosage: 60 MG, QD
  9. ESOMEPRAZOLE MAGNESIUM. [Concomitant]
     Active Substance: ESOMEPRAZOLE MAGNESIUM
     Dosage: 40 MG, UNK
     Route: 048
  10. DUROGESIC [Concomitant]
     Active Substance: FENTANYL
     Dosage: UNK, Q72HR

REACTIONS (1)
  - Basal ganglia haemorrhage [Fatal]

NARRATIVE: CASE EVENT DATE: 20170403
